FAERS Safety Report 8024900-9 (Version None)
Quarter: 2012Q1

REPORT INFORMATION
  Report Type: 
  Country: None (occurrence: None)
  Receive Date: 20120105
  Receipt Date: 20111230
  Transmission Date: 20120608
  Serious: Yes (Hospitalization, Other)
  Sender: FDA-Public Use
  Company Number: PHEH2011US012800

PATIENT
  Age: 72 Year
  Sex: Female

DRUGS (12)
  1. METHOCARBAMOL [Concomitant]
     Dosage: 750 MG, UNK
  2. MORPHINE SULFATE [Concomitant]
     Dosage: 60 MG, EXTENDED RELEASE
  3. VOLTAREN [Suspect]
     Route: 048
  4. CEFUROXIME [Concomitant]
     Indication: LOCALISED INFECTION
  5. FIORICET [Concomitant]
     Indication: MIGRAINE
  6. TRIAMTERENE [Concomitant]
     Indication: BLOOD PRESSURE ABNORMAL
     Dosage: 37.5/25 MG
  7. POTASSIUM CHLORIDE [Concomitant]
     Dosage: 10 MG, UNK
  8. MORPHINE SULFATE [Concomitant]
     Dosage: 15 MG, DIRECT RELEASE
  9. METFORMIN HCL [Concomitant]
     Indication: DIABETES MELLITUS
  10. ALLOPURINOL [Concomitant]
     Indication: GOUT
     Dosage: 300 MG, UNK
  11. CLONAZEPAM [Concomitant]
  12. LASIX [Concomitant]
     Dosage: 40 MG, UNK

REACTIONS (10)
  - ANAPHYLACTIC SHOCK [None]
  - SPINAL FRACTURE [None]
  - BACK PAIN [None]
  - RASH [None]
  - GAIT DISTURBANCE [None]
  - THROAT TIGHTNESS [None]
  - MIGRAINE [None]
  - OEDEMA PERIPHERAL [None]
  - BACK INJURY [None]
  - URTICARIA [None]
